FAERS Safety Report 8772098 (Version 1)
Quarter: 2012Q4

REPORT INFORMATION
  Report Type: 
  Country: US (occurrence: US)
  Receive Date: 20120906
  Receipt Date: 20120906
  Transmission Date: 20130627
  Serious: Yes (Other)
  Sender: FDA-Public Use
  Company Number: US-009507513-1209USA001150

PATIENT

DRUGS (2)
  1. SAPHRIS [Suspect]
     Indication: BIPOLAR DISORDER
     Dosage: 5 mg, hs
     Route: 060
  2. WELLBUTRIN [Suspect]

REACTIONS (2)
  - Convulsion [Recovered/Resolved]
  - Underdose [Unknown]
